FAERS Safety Report 4618209-0 (Version None)
Quarter: 2005Q1

REPORT INFORMATION
  Report Type: 
  Country: None (occurrence: None)
  Receive Date: 20050323
  Receipt Date: 20050309
  Transmission Date: 20050727
  Serious: Yes (Hospitalization)
  Sender: FDA-Public Use
  Company Number: JP_040402932

PATIENT
  Age: 34 Year
  Sex: Female
  Weight: 98 kg

DRUGS (3)
  1. HUMACART-HUMAN REGULAR INSULIN (RDNA) (HUMAN INSULI [Suspect]
     Indication: GESTATIONAL DIABETES
     Dosage: 47 U DAY
     Dates: start: 20020422, end: 20020714
  2. NPH INSULIN [Suspect]
     Indication: GESTATIONAL DIABETES
     Dosage: 2 U DAY
     Dates: start: 20020422, end: 20020818
  3. HUMALOG [Suspect]
     Indication: GESTATIONAL DIABETES
     Dosage: 77 U DAY
     Dates: start: 20020715

REACTIONS (5)
  - DRUG EXPOSURE DURING PREGNANCY [None]
  - HYPOGLYCAEMIA [None]
  - PREMATURE BABY [None]
  - PREMATURE LABOUR [None]
  - THREATENED LABOUR [None]
